FAERS Safety Report 21042474 (Version 3)
Quarter: 2022Q3

REPORT INFORMATION
  Report Type: Report from Study
  Country: CA (occurrence: CA)
  Receive Date: 20220705
  Receipt Date: 20220829
  Transmission Date: 20221027
  Serious: Yes (Other)
  Sender: FDA-Public Use
  Company Number: CA-JNJFOC-20220609351

PATIENT
  Age: 16 Year
  Sex: Male
  Weight: 67.7 kg

DRUGS (3)
  1. REMICADE [Suspect]
     Active Substance: INFLIXIMAB
     Indication: Crohn^s disease
     Route: 042
     Dates: start: 20220303
  2. REMICADE [Suspect]
     Active Substance: INFLIXIMAB
     Dosage: ON 08-AUG-2022, PATIENT RECEIVED 06TH INFLIXIMAB RECOMBINANT INFUSION OF 500 MG AND PARTIAL HARVEY-B
     Route: 042
     Dates: start: 20220628
  3. REMICADE [Suspect]
     Active Substance: INFLIXIMAB
     Route: 042
     Dates: start: 2022

REACTIONS (4)
  - Melaena [Recovering/Resolving]
  - Crohn^s disease [Recovering/Resolving]
  - Drug level decreased [Unknown]
  - Off label use [Unknown]

NARRATIVE: CASE EVENT DATE: 20220101
